FAERS Safety Report 11650181 (Version 2)
Quarter: 2015Q4

REPORT INFORMATION
  Report Type: Other
  Country: BR (occurrence: BR)
  Receive Date: 20151021
  Receipt Date: 20151028
  Transmission Date: 20160304
  Serious: Yes (Hospitalization, Other)
  Sender: FDA-Public Use
  Company Number: BR-SHIRE-BR201512969

PATIENT
  Sex: Male
  Weight: 29 kg

DRUGS (4)
  1. CLOBAZAM [Concomitant]
     Active Substance: CLOBAZAM
     Indication: SLEEP DISORDER
     Dosage: UNK, UNKNOWN
     Route: 065
  2. ELAPRASE [Suspect]
     Active Substance: IDURSULFASE
     Indication: MUCOPOLYSACCHARIDOSIS II
     Dosage: 18 MG, 1X/WEEK
     Route: 041
  3. NEOSINE [Concomitant]
     Active Substance: INOSINE PRANOBEX
     Indication: SLEEP DISORDER
     Dosage: UNK, UNKNOWN
     Route: 065
  4. SODIUM VALPROATE [Concomitant]
     Active Substance: VALPROATE SODIUM
     Indication: SEIZURE
     Dosage: 6 ML, OTHER(EVERY 8 HOURS)
     Route: 048

REACTIONS (3)
  - Malaise [Unknown]
  - Headache [Recovering/Resolving]
  - Hydrocephalus [Recovering/Resolving]

NARRATIVE: CASE EVENT DATE: 2015
